FAERS Safety Report 25703471 (Version 1)
Quarter: 2025Q3

REPORT INFORMATION
  Report Type: Spontaneous
  Country: RS (occurrence: RS)
  Receive Date: 20250820
  Receipt Date: 20250820
  Transmission Date: 20251021
  Serious: Yes (Hospitalization, Other)
  Sender: AMNEAL
  Company Number: RS-AMNEAL PHARMACEUTICALS-2025-AMRX-03093

PATIENT
  Age: 31 Year
  Sex: Female

DRUGS (6)
  1. VANCOMYCIN [Suspect]
     Active Substance: VANCOMYCIN
     Indication: Staphylococcal infection
  2. CEFTRIAXONE [Concomitant]
     Active Substance: CEFTRIAXONE
     Indication: Evidence based treatment
     Dosage: 2 GRAM, DAILY
  3. METRONIDAZOLE [Concomitant]
     Active Substance: METRONIDAZOLE
     Indication: Evidence based treatment
     Route: 065
  4. CIPROFLOXACIN [Concomitant]
     Active Substance: CIPROFLOXACIN
     Indication: Puerperal infection
     Route: 065
  5. AMOXICILLIN + CLAVULANIC ACID [AMOXICILLIN TRIHYDRATE;CLAVULANATE POTA [Concomitant]
     Indication: Puerperal infection
     Route: 065
  6. BROMOCRIPTINE [Concomitant]
     Active Substance: BROMOCRIPTINE
     Indication: Lactation inhibition therapy
     Route: 065

REACTIONS (2)
  - Leukopenia [Recovered/Resolved]
  - Agranulocytosis [Recovered/Resolved]
